FAERS Safety Report 9734055 (Version 6)
Quarter: 2014Q3

REPORT INFORMATION
  Report Type: Report from Study
  Country: AU (occurrence: AU)
  Receive Date: 20131205
  Receipt Date: 20140808
  Transmission Date: 20150326
  Serious: Yes (Hospitalization, Other)
  Sender: FDA-Public Use
  Company Number: AU-PFIZER INC-2012258026

PATIENT
  Age: 15 Year
  Sex: Male
  Weight: 50.3 kg

DRUGS (8)
  1. CRIZOTINIB [Suspect]
     Active Substance: CRIZOTINIB
     Dosage: 450 MG, 2X/DAY
     Route: 048
     Dates: start: 20121022
  2. G-CSF [Suspect]
     Active Substance: FILGRASTIM
     Dosage: 300 UG, ONCE WEEKLY
     Dates: start: 20130814, end: 20140324
  3. G-CSF [Suspect]
     Active Substance: FILGRASTIM
     Dosage: 300 UG, 2X/WEEKLY
     Dates: start: 20130814
  4. PANTOPRAZOLE [Concomitant]
     Active Substance: PANTOPRAZOLE SODIUM
     Dosage: 40 MG, 1X/DAY
     Route: 048
     Dates: start: 20121010
  5. CRIZOTINIB [Suspect]
     Active Substance: CRIZOTINIB
     Indication: INFLAMMATORY MYOFIBROBLASTIC TUMOUR
     Dosage: 400 MG, 2X/DAY
     Route: 048
     Dates: start: 20120515
  6. G-CSF [Suspect]
     Active Substance: FILGRASTIM
     Indication: NEUTROPENIA
     Dosage: 300 UG, EVERY SECOND WEEK
     Dates: start: 201211
  7. CRIZOTINIB [Suspect]
     Active Substance: CRIZOTINIB
     Dosage: 250 MG, 2X/DAY
     Route: 048
     Dates: start: 20120815
  8. CRIZOTINIB [Suspect]
     Active Substance: CRIZOTINIB
     Dosage: 400 MG, 2X/DAY
     Route: 048
     Dates: start: 20121016

REACTIONS (17)
  - Leukopenia [Recovered/Resolved]
  - Anaemia [Recovered/Resolved]
  - Blood alkaline phosphatase increased [Not Recovered/Not Resolved]
  - Respiratory tract infection viral [Unknown]
  - Neutropenia [Not Recovered/Not Resolved]
  - Alanine aminotransferase increased [Not Recovered/Not Resolved]
  - Monocyte count increased [Recovered/Resolved]
  - C-reactive protein increased [Recovered/Resolved]
  - Leukocytosis [Unknown]
  - Neutrophil count increased [Unknown]
  - Diarrhoea [Unknown]
  - Alanine aminotransferase increased [Recovered/Resolved]
  - Eosinophil count increased [Recovered/Resolved]
  - Platelet count increased [Not Recovered/Not Resolved]
  - Hypersensitivity [Recovered/Resolved]
  - Postoperative wound infection [Recovered/Resolved]
  - Nausea [Unknown]

NARRATIVE: CASE EVENT DATE: 201210
